FAERS Safety Report 8571939-0 (Version None)
Quarter: 2012Q3

REPORT INFORMATION
  Report Type: 
  Country: None (occurrence: None)
  Receive Date: 20120806
  Receipt Date: 20120725
  Transmission Date: 20120928
  Serious: Yes (Other)
  Sender: FDA-Public Use
  Company Number: TR-SANOFI-AVENTIS-2012SA055437

PATIENT

DRUGS (4)
  1. ISONIAZID [Suspect]
     Route: 065
  2. PYRAZINAMIDE [Suspect]
     Route: 065
  3. RIFAMPICIN [Suspect]
     Route: 065
  4. MEROPENEM [Suspect]
     Route: 065

REACTIONS (2)
  - HEPATITIS TOXIC [None]
  - ACUTE HEPATIC FAILURE [None]
